FAERS Safety Report 9631056 (Version 3)
Quarter: 2013Q4

REPORT INFORMATION
  Report Type: Spontaneous
  Country: CA (occurrence: CA)
  Receive Date: 20131018
  Receipt Date: 20131111
  Transmission Date: 20140711
  Serious: Yes (Other)
  Sender: FDA-Public Use
  Company Number: CA-PFIZER INC-2013281021

PATIENT
  Sex: Female

DRUGS (2)
  1. ADVIL EXTRA STRENGTH LIQUI-GELS [Suspect]
     Indication: HEADACHE
     Dosage: UNK
  2. ADVIL EXTRA STRENGTH LIQUI-GELS [Suspect]
     Indication: PAIN

REACTIONS (2)
  - Pharyngitis streptococcal [Recovered/Resolved]
  - Drug ineffective [Unknown]
